FAERS Safety Report 9127631 (Version 1)
Quarter: 2013Q1

REPORT INFORMATION
  Report Type: Report from Study
  Country: DE (occurrence: DE)
  Receive Date: 20130228
  Receipt Date: 20130228
  Transmission Date: 20140127
  Serious: Yes (Death, Other)
  Sender: FDA-Public Use
  Company Number: DE-ASTELLAS-2013EU001633

PATIENT
  Sex: Male

DRUGS (3)
  1. ENZALUTAMIDE [Suspect]
     Indication: PROSTATE CANCER
     Dosage: 160 MG, UID/QD
     Route: 048
     Dates: start: 20121219, end: 20130215
  2. IBUPROFEN [Concomitant]
     Indication: PAIN
     Dosage: 600 MG, UNKNOWN/D
     Route: 048
  3. LYRICA [Concomitant]
     Indication: PAIN
     Dosage: 225 MG, UNKNOWN/D
     Route: 048

REACTIONS (2)
  - Death [Fatal]
  - Polyneuropathy [Unknown]
